FAERS Safety Report 6759403-2 (Version None)
Quarter: 2010Q2

REPORT INFORMATION
  Report Type: 
  Country: None (occurrence: None)
  Receive Date: 20100607
  Receipt Date: 20100525
  Transmission Date: 20101027
  Serious: Yes (Death)
  Sender: FDA-Public Use
  Company Number: US-ELI_LILLY_AND_COMPANY-US201005006972

PATIENT
  Sex: Male

DRUGS (4)
  1. FORTEO [Suspect]
     Indication: OSTEOPOROSIS
     Dosage: 20 UG, DAILY (1/D)
     Dates: start: 20080101
  2. INSULIN [Concomitant]
  3. VITAMINS [Concomitant]
  4. CALCIUM CARBONATE [Concomitant]

REACTIONS (6)
  - CHEST PAIN [None]
  - CYANOSIS [None]
  - MYOCARDIAL INFARCTION [None]
  - PAIN [None]
  - RESPIRATORY ARREST [None]
  - SPINAL FRACTURE [None]
